FAERS Safety Report 5500699-2 (Version None)
Quarter: 2007Q4

REPORT INFORMATION
  Report Type: 
  Country: None (occurrence: None)
  Receive Date: 20071025
  Receipt Date: 20071015
  Transmission Date: 20080405
  Serious: Yes (Hospitalization)
  Sender: FDA-Public Use
  Company Number: 2007-04648

PATIENT
  Age: 34 Year
  Sex: Female

DRUGS (8)
  1. PROGESTERONE IN OIL INJ [Suspect]
     Indication: IN VITRO FERTILISATION
     Dosage: INTRAMUSCULAR
     Route: 030
     Dates: start: 20060901
  2. FEMTRACE [Suspect]
     Indication: IN VITRO FERTILISATION
     Dates: start: 20060801
  3. PROMETRIUM [Suspect]
     Indication: IN VITRO FERTILISATION
     Dates: start: 20060801
  4. GANIRELIX ACETATE INJECTION [Suspect]
     Indication: IN VITRO FERTILISATION
     Dates: start: 20060101
  5. FOLLISTIM [Suspect]
     Indication: IN VITRO FERTILISATION
  6. MENOPUR [Suspect]
     Indication: IN VITRO FERTILISATION
  7. CHORIONIC GONADTROPIN [Suspect]
     Indication: IN VITRO FERTILISATION
     Dosage: 10000U,
  8. PRENATAL VITAMINS (TOCOPHEROL, NICOTINIC ACID, RETINOL, VITAMIN D NOS, [Concomitant]

REACTIONS (1)
  - DEEP VEIN THROMBOSIS [None]
